FAERS Safety Report 6749135-9 (Version None)
Quarter: 2010Q2

REPORT INFORMATION
  Report Type: 
  Country: None (occurrence: None)
  Receive Date: 20100601
  Receipt Date: 20100527
  Transmission Date: 20101027
  Serious: Yes (Life-Threatening, Hospitalization)
  Sender: FDA-Public Use
  Company Number: JP-ASTRAZENECA-2010SE17598

PATIENT
  Age: 306 Month
  Sex: Male
  Weight: 98 kg

DRUGS (9)
  1. SEROQUEL [Suspect]
     Indication: SCHIZOPHRENIA
     Route: 048
  2. SEROQUEL [Suspect]
     Indication: BIPOLAR DISORDER
     Route: 048
  3. SULPIRIDE [Suspect]
     Route: 048
  4. AMOBAN [Suspect]
     Indication: SCHIZOPHRENIA
     Route: 048
  5. AMOBAN [Suspect]
     Indication: BIPOLAR DISORDER
     Route: 048
  6. DEPAKENE [Suspect]
     Route: 048
  7. HIRNAMIN [Suspect]
     Route: 048
  8. BIBITTOACE [Suspect]
     Route: 048
  9. PARULEON [Suspect]
     Route: 048

REACTIONS (7)
  - ALTERED STATE OF CONSCIOUSNESS [None]
  - DISSEMINATED INTRAVASCULAR COAGULATION [None]
  - HYPERCREATININAEMIA [None]
  - HYPOXIA [None]
  - OVERDOSE [None]
  - PNEUMONIA ASPIRATION [None]
  - QUADRIPLEGIA [None]
